FAERS Safety Report 20408679 (Version 6)
Quarter: 2022Q2

REPORT INFORMATION
  Report Type: Report from Study
  Country: BR (occurrence: BR)
  Receive Date: 20220201
  Receipt Date: 20220526
  Transmission Date: 20220721
  Serious: Yes (Other)
  Sender: FDA-Public Use
  Company Number: BR-NOVARTISPH-NVSC2020BR297353

PATIENT
  Age: 40 Year
  Sex: Female

DRUGS (3)
  1. KISQALI [Suspect]
     Active Substance: RIBOCICLIB
     Indication: Breast cancer
     Dosage: FOR 21 DAYS WITH 7 DAYS BREAK
     Route: 065
     Dates: start: 20200923
  2. KISQALI [Suspect]
     Active Substance: RIBOCICLIB
     Dosage: 3 DF
     Route: 065
     Dates: start: 20200923
  3. KISQALI [Suspect]
     Active Substance: RIBOCICLIB
     Dosage: 3 DOSAGE FORM, QD (600 MG)
     Route: 048
     Dates: start: 20200923

REACTIONS (26)
  - Metastases to spine [Unknown]
  - Decreased immune responsiveness [Recovered/Resolved]
  - Malaise [Recovered/Resolved]
  - Insomnia [Not Recovered/Not Resolved]
  - Sluggishness [Not Recovered/Not Resolved]
  - Nausea [Not Recovered/Not Resolved]
  - Dizziness [Not Recovered/Not Resolved]
  - Fatigue [Unknown]
  - Asthenia [Recovered/Resolved]
  - Blood pressure fluctuation [Unknown]
  - Pain [Unknown]
  - Anxiety [Unknown]
  - Skin fissures [Unknown]
  - Throat irritation [Unknown]
  - Pain in extremity [Unknown]
  - Vertigo [Not Recovered/Not Resolved]
  - Dry skin [Unknown]
  - Urinary tract infection [Unknown]
  - Urinary tract pain [Unknown]
  - COVID-19 [Recovered/Resolved]
  - Anosmia [Unknown]
  - Headache [Not Recovered/Not Resolved]
  - Cough [Recovering/Resolving]
  - Influenza [Unknown]
  - Back pain [Not Recovered/Not Resolved]
  - Sinusitis [Unknown]

NARRATIVE: CASE EVENT DATE: 20200901
